FAERS Safety Report 25062225 (Version 3)
Quarter: 2025Q2

REPORT INFORMATION
  Report Type: Spontaneous
  Country: IL (occurrence: IL)
  Receive Date: 20250311
  Receipt Date: 20250602
  Transmission Date: 20250717
  Serious: Yes (Other)
  Sender: TAKEDA
  Company Number: IL-TAKEDA-2025TUS023585

PATIENT
  Age: 20 Year
  Sex: Male

DRUGS (4)
  1. HYQVIA [Suspect]
     Active Substance: HUMAN IMMUNOGLOBULIN G\HYALURONIDASE (HUMAN RECOMBINANT)
     Indication: Bruton^s agammaglobulinaemia
  2. INSULIN NOS [Concomitant]
     Active Substance: INSULIN NOS
  3. LAMICTAL [Concomitant]
     Active Substance: LAMOTRIGINE
  4. HUMAN IMMUNOGLOBULIN G [Concomitant]
     Active Substance: HUMAN IMMUNOGLOBULIN G

REACTIONS (8)
  - Meningitis [Unknown]
  - Cerebral atrophy [Unknown]
  - Nervous system disorder [Recovered/Resolved]
  - Electroencephalogram abnormal [Unknown]
  - Weight decreased [Unknown]
  - Dysphagia [Unknown]
  - Gait disturbance [Unknown]
  - Tremor [Unknown]

NARRATIVE: CASE EVENT DATE: 20240601
